FAERS Safety Report 21268911 (Version 6)
Quarter: 2023Q1

REPORT INFORMATION
  Report Type: Report from Study
  Country: US (occurrence: US)
  Receive Date: 20220830
  Receipt Date: 20230113
  Transmission Date: 20230418
  Serious: Yes (Other)
  Sender: FDA-Public Use
  Company Number: US-002147023-NVSC2022US194796

PATIENT
  Sex: Male

DRUGS (3)
  1. ENTRESTO [Suspect]
     Active Substance: SACUBITRIL\VALSARTAN
     Indication: Product used for unknown indication
     Dosage: 1.5 DOSAGE FORM, (CONTAINS 24.3 MG SACUBITRIL AND 25.7 MG VALSARTAN), BID (1 TAB IN AM AND 0.5 TAB I
     Route: 048
     Dates: start: 202207
  2. ENTRESTO [Suspect]
     Active Substance: SACUBITRIL\VALSARTAN
     Dosage: 1.5 DOSAGE FORM, (CONTAINS 24.3 MG SACUBITRIL AND 25.7 MG VALSARTAN), BID (1 TAB IN AM AND 0.5 TAB I
     Route: 048
     Dates: start: 20220919
  3. ENTRESTO [Suspect]
     Active Substance: SACUBITRIL\VALSARTAN
     Dosage: 1.5 DOSAGE FORM, (CONTAINS 24.3 MG SACUBITRIL AND 25.7 MG VALSARTAN), BID (1 TAB IN AM AND 0.5 TAB I
     Route: 048
     Dates: start: 20221107

REACTIONS (6)
  - Atrial fibrillation [Unknown]
  - Neuropathy peripheral [Unknown]
  - Hypoaesthesia [Unknown]
  - Somnolence [Unknown]
  - Prescribed underdose [Unknown]
  - Wrong technique in product usage process [Not Recovered/Not Resolved]
